FAERS Safety Report 5523282-1 (Version None)
Quarter: 2007Q4

REPORT INFORMATION
  Report Type: 
  Country: None (occurrence: None)
  Receive Date: 20071121
  Receipt Date: 20071113
  Transmission Date: 20080405
  Serious: No
  Sender: FDA-Public Use
  Company Number: US-BAXTER-2007BH008993

PATIENT
  Age: 40 Year
  Sex: Male
  Weight: 64 kg

DRUGS (7)
  1. CEFTRIAXONE [Suspect]
     Indication: MENINGITIS
     Route: 042
  2. CEFTRIAXONE [Suspect]
     Route: 042
  3. VANCOMYCIN [Suspect]
     Indication: MENINGITIS
     Route: 042
  4. PHENYTOIN [Concomitant]
     Indication: DRUG USE FOR UNKNOWN INDICATION
     Route: 065
  5. LEVETIRACETAM [Concomitant]
     Indication: DRUG USE FOR UNKNOWN INDICATION
     Route: 065
  6. ACYCLOVIR [Concomitant]
     Indication: CENTRAL NERVOUS SYSTEM INFECTION
     Route: 042
  7. SODIUM CHLORIDE 0.9% IN PLASTIC CONTAINER [Concomitant]
     Route: 065

REACTIONS (1)
  - NEPHRITIS INTERSTITIAL [None]
